FAERS Safety Report 13514943 (Version 1)
Quarter: 2017Q2

REPORT INFORMATION
  Report Type: Spontaneous
  Country: US (occurrence: US)
  Receive Date: 20170504
  Receipt Date: 20170504
  Transmission Date: 20170830
  Serious: No
  Sender: FDA-Public Use
  Company Number: US-BAYER-2017-085291

PATIENT
  Age: 74 Year
  Sex: Male
  Weight: 85 kg

DRUGS (1)
  1. MIRALAX [Suspect]
     Active Substance: POLYETHYLENE GLYCOL 3350
     Indication: GASTROINTESTINAL DISORDER
     Dosage: UNK,1 CAP A DAY DOSE
     Route: 048

REACTIONS (2)
  - Product use issue [Unknown]
  - Inappropriate prescribing [Unknown]
